FAERS Safety Report 9764190 (Version 1)
Quarter: 2013Q4

REPORT INFORMATION
  Report Type: Report from Study
  Country: AR (occurrence: AR)
  Receive Date: 20131216
  Receipt Date: 20131216
  Transmission Date: 20140711
  Serious: Yes (Other)
  Sender: FDA-Public Use
  Company Number: PHHY2013AR146843

PATIENT
  Sex: Male

DRUGS (1)
  1. DIOVAN D [Suspect]
     Dosage: 160/25 MG, UNK
     Route: 048

REACTIONS (3)
  - Parkinson^s disease [Unknown]
  - Malaise [Unknown]
  - General physical health deterioration [Unknown]
